FAERS Safety Report 22634834 (Version 1)
Quarter: 2023Q2

REPORT INFORMATION
  Report Type: Spontaneous
  Country: US (occurrence: US)
  Receive Date: 20230623
  Receipt Date: 20230623
  Transmission Date: 20230722
  Serious: No
  Sender: FDA-Public Use
  Company Number: US-SA-SAC20230622000063

PATIENT
  Sex: Female

DRUGS (11)
  1. AUBAGIO [Suspect]
     Active Substance: TERIFLUNOMIDE
     Indication: Multiple sclerosis
     Dosage: 14 MG, QD
     Route: 048
     Dates: end: 202304
  2. AUBAGIO [Suspect]
     Active Substance: TERIFLUNOMIDE
     Indication: Dyskinesia
  3. AUSTEDO [Concomitant]
     Active Substance: DEUTETRABENAZINE
  4. GABAPENTIN [Concomitant]
     Active Substance: GABAPENTIN
  5. CLOPIDOGREL [Concomitant]
     Active Substance: CLOPIDOGREL BISULFATE
  6. METOPROLOL SUCCINATE [Concomitant]
     Active Substance: METOPROLOL SUCCINATE
  7. ASPIRIN [Concomitant]
     Active Substance: ASPIRIN
  8. ATORVASTATIN CALCIUM [Concomitant]
     Active Substance: ATORVASTATIN CALCIUM
  9. VITAMIN D3 [Concomitant]
     Active Substance: CHOLECALCIFEROL
  10. CLARITIN-D NOS [Concomitant]
     Active Substance: LORATADINE\PSEUDOEPHEDRINE SULFATE
  11. VENLAFAXINE HYDROCHLORIDE [Concomitant]
     Active Substance: VENLAFAXINE HYDROCHLORIDE

REACTIONS (6)
  - Vision blurred [Unknown]
  - Dizziness [Unknown]
  - Gait inability [Unknown]
  - Fall [Unknown]
  - Hand fracture [Unknown]
  - Product use in unapproved indication [Unknown]
